FAERS Safety Report 8465746 (Version 3)
Quarter: 2014Q3

REPORT INFORMATION
  Report Type: Spontaneous
  Country: JP (occurrence: JP)
  Receive Date: 20120319
  Receipt Date: 20140722
  Transmission Date: 20150326
  Serious: Yes (Other)
  Sender: FDA-Public Use
  Company Number: PHHY2012JP020418

PATIENT
  Age: 11 Year
  Sex: Male

DRUGS (10)
  1. BUSULFAN [Concomitant]
     Active Substance: BUSULFAN
     Indication: GRAFT VERSUS HOST DISEASE
     Dosage: 3.2 MG/KG, UNK
  2. ARA-C [Concomitant]
     Active Substance: CYTARABINE
     Dosage: 50 MG/M2, UNK
  3. AZACITIDINE. [Concomitant]
     Active Substance: AZACITIDINE
     Dosage: 75 MG/M2, UNK
  4. MITOMYCIN C [Concomitant]
     Active Substance: MITOMYCIN
  5. MELPHALAN [Concomitant]
     Active Substance: MELPHALAN
     Indication: GRAFT VERSUS HOST DISEASE
     Dosage: 70 MG/M2, UNK
  6. AZACITIDINE. [Concomitant]
     Active Substance: AZACITIDINE
     Dosage: 32 UNK, UNK
     Route: 058
  7. FLUDARABINE [Concomitant]
     Active Substance: FLUDARABINE PHOSPHATE
     Dosage: 30 MG/M2, UNK
  8. ADRIAMYCIN [Concomitant]
     Active Substance: DOXORUBICIN HYDROCHLORIDE
  9. AZACITIDINE. [Concomitant]
     Active Substance: AZACITIDINE
     Dosage: 75 MG/M2, UNK
  10. CICLOSPORIN [Suspect]
     Active Substance: CYCLOSPORINE
     Indication: PROPHYLAXIS AGAINST GRAFT VERSUS HOST DISEASE

REACTIONS (1)
  - Graft versus host disease in skin [Unknown]
